FAERS Safety Report 7169671-3 (Version None)
Quarter: 2010Q4

REPORT INFORMATION
  Report Type: 
  Country: None (occurrence: None)
  Receive Date: 20101217
  Receipt Date: 20101206
  Transmission Date: 20110411
  Serious: Yes (Hospitalization)
  Sender: FDA-Public Use
  Company Number: JP-SANOFI-AVENTIS-A01200907353

PATIENT
  Age: 56 Year
  Sex: Male

DRUGS (19)
  1. ELPLAT [Suspect]
     Indication: COLON CANCER
     Route: 041
     Dates: start: 20080612, end: 20080612
  2. ELPLAT [Suspect]
     Route: 041
     Dates: start: 20090626, end: 20090626
  3. SUNITINIB MALATE [Suspect]
     Indication: COLON CANCER
     Route: 048
     Dates: start: 20080612, end: 20080627
  4. SUNITINIB MALATE [Suspect]
     Route: 048
     Dates: start: 20090626, end: 20090630
  5. CALCIUM LEVOFOLINATE [Concomitant]
     Indication: COLON CANCER
     Route: 041
     Dates: start: 20080612, end: 20080612
  6. CALCIUM LEVOFOLINATE [Concomitant]
     Route: 041
     Dates: start: 20090626, end: 20090626
  7. FLUOROURACIL [Concomitant]
     Indication: COLON CANCER
     Route: 040
     Dates: start: 20080612, end: 20080612
  8. FLUOROURACIL [Concomitant]
     Route: 041
     Dates: start: 20080612, end: 20080612
  9. FLUOROURACIL [Concomitant]
     Route: 040
     Dates: start: 20080612, end: 20090626
  10. FLUOROURACIL [Concomitant]
     Route: 041
     Dates: start: 20080612, end: 20090626
  11. RENIVACE [Concomitant]
     Indication: HYPERTENSION
     Route: 048
     Dates: start: 20080519
  12. BLOPRESS [Concomitant]
     Indication: HYPERTENSION
     Route: 048
     Dates: start: 20080527
  13. ADALAT CC [Concomitant]
     Indication: HYPERTENSION
     Route: 048
     Dates: start: 20080705
  14. SODIUM GUALENATE [Concomitant]
     Indication: STOMATITIS
     Route: 049
     Dates: start: 20080722
  15. HIRUDOID [Concomitant]
     Indication: DRY SKIN PROPHYLAXIS
     Dates: start: 20080723
  16. UREPEARL [Concomitant]
     Indication: RASH
  17. MYSER [Concomitant]
     Indication: RASH
     Dates: start: 20090109
  18. PARIET [Concomitant]
     Indication: GASTROINTESTINAL MUCOSAL DISORDER
     Dates: start: 20090309
  19. POLAPREZINC [Concomitant]
     Indication: DYSGEUSIA
     Route: 048
     Dates: start: 20090508

REACTIONS (1)
  - CEREBRAL INFARCTION [None]
